FAERS Safety Report 7307906-4 (Version None)
Quarter: 2011Q1

REPORT INFORMATION
  Report Type: 
  Country: None (occurrence: None)
  Receive Date: 20110223
  Receipt Date: 20110204
  Transmission Date: 20110831
  Serious: Yes (Congenital Anomaly)
  Sender: FDA-Public Use
  Company Number: CH-JNJFOC-20110205922

PATIENT

DRUGS (2)
  1. ZYRTEC [Suspect]
     Route: 064
  2. ZYRTEC [Suspect]
     Indication: HYPERSENSITIVITY
     Route: 064

REACTIONS (3)
  - DRUG EXPOSURE DURING PREGNANCY [None]
  - CONGENITAL DIAPHRAGMATIC HERNIA [None]
  - SPINA BIFIDA [None]
